FAERS Safety Report 23031801 (Version 2)
Quarter: 2023Q4

REPORT INFORMATION
  Report Type: Spontaneous
  Country: US (occurrence: US)
  Receive Date: 20231005
  Receipt Date: 20231010
  Transmission Date: 20240110
  Serious: No
  Sender: FDA-Public Use
  Company Number: US-ELI_LILLY_AND_COMPANY-US202309016846

PATIENT
  Age: 42 Year
  Sex: Female

DRUGS (2)
  1. MOUNJARO [Suspect]
     Active Substance: TIRZEPATIDE
     Indication: Weight decreased
     Dosage: 7.5 MG, UNKNOWN
     Route: 065
     Dates: start: 20230924
  2. MOUNJARO [Suspect]
     Active Substance: TIRZEPATIDE
     Indication: Glucose tolerance impaired

REACTIONS (10)
  - Pain [Recovered/Resolved]
  - Chills [Recovering/Resolving]
  - Influenza like illness [Recovered/Resolved]
  - Disorientation [Recovered/Resolved]
  - Off label use [Unknown]
  - Sluggishness [Recovering/Resolving]
  - Fatigue [Recovered/Resolved]
  - Vomiting [Recovered/Resolved]
  - Constipation [Recovering/Resolving]
  - Nausea [Recovered/Resolved]

NARRATIVE: CASE EVENT DATE: 20230924
